FAERS Safety Report 5276687-0 (Version None)
Quarter: 2007Q1

REPORT INFORMATION
  Report Type: 
  Country: None (occurrence: None)
  Receive Date: 20070327
  Receipt Date: 20070316
  Transmission Date: 20070707
  Serious: Yes (Other)
  Sender: FDA-Public Use
  Company Number: PHNU2007DE01236

PATIENT
  Sex: Female

DRUGS (1)
  1. TRILEPTAL [Suspect]

REACTIONS (3)
  - GAMMA-GLUTAMYLTRANSFERASE INCREASED [None]
  - RASH [None]
  - VASCULITIS [None]
